FAERS Safety Report 21237481 (Version 2)
Quarter: 2022Q3

REPORT INFORMATION
  Report Type: Report from Study
  Country: GB (occurrence: GB)
  Receive Date: 20220822
  Receipt Date: 20220908
  Transmission Date: 20221027
  Serious: Yes (Hospitalization)
  Sender: FDA-Public Use
  Company Number: GB-SECURA BIO, INC.-2022-SECUR-GB000058

PATIENT

DRUGS (5)
  1. DUVELISIB [Suspect]
     Active Substance: DUVELISIB
     Indication: Non-Hodgkin^s lymphoma unspecified histology indolent
     Dosage: 25 MG, BID
     Route: 048
     Dates: start: 20220323
  2. EDOXABAN [Concomitant]
     Active Substance: EDOXABAN
     Indication: Anticoagulant therapy
     Dosage: 60 MG, DAILY
     Route: 065
  3. MEBEVERINE [Concomitant]
     Active Substance: MEBEVERINE
     Indication: Muscle spasms
     Dosage: 135 MG, TID
     Route: 065
  4. ACETAMINOPHEN\CODEINE PHOSPHATE [Concomitant]
     Active Substance: ACETAMINOPHEN\CODEINE PHOSPHATE
     Indication: Analgesic therapy
     Dosage: 30/500 MG, DAILY
     Route: 065
  5. ACYCLOVIR [Concomitant]
     Active Substance: ACYCLOVIR
     Indication: Product used for unknown indication
     Dosage: 400 MG, BID
     Route: 065
     Dates: start: 20220323

REACTIONS (3)
  - Cardiac failure [Not Recovered/Not Resolved]
  - Pleural effusion [Recovered/Resolved]
  - Dyspnoea [Recovered/Resolved]

NARRATIVE: CASE EVENT DATE: 20220811
